FAERS Safety Report 10131494 (Version 1)
Quarter: 2014Q2

REPORT INFORMATION
  Report Type: Spontaneous
  Country: IT (occurrence: IT)
  Receive Date: 20140428
  Receipt Date: 20140428
  Transmission Date: 20141212
  Serious: Yes (Other)
  Sender: FDA-Public Use
  Company Number: PHHY2014IT049845

PATIENT
  Age: 36 Year
  Sex: Female

DRUGS (1)
  1. GILENYA [Suspect]
     Indication: RELAPSING-REMITTING MULTIPLE SCLEROSIS
     Route: 048

REACTIONS (5)
  - Central nervous system lesion [Recovering/Resolving]
  - Rebound effect [Unknown]
  - Lymphopenia [Recovering/Resolving]
  - Paraparesis [Not Recovered/Not Resolved]
  - Leukopenia [Unknown]
